FAERS Safety Report 11637033 (Version 1)
Quarter: 2015Q4

REPORT INFORMATION
  Report Type: Spontaneous
  Country: US (occurrence: US)
  Receive Date: 20151016
  Receipt Date: 20151016
  Transmission Date: 20160304
  Serious: Yes (Other)
  Sender: FDA-Public Use
  Company Number: US-PERRIGO-15US010785

PATIENT
  Age: 35 Year
  Sex: Female
  Weight: 78.46 kg

DRUGS (1)
  1. DAYTIME NITE TIME [Suspect]
     Active Substance: ACETAMINOPHEN\DEXTROMETHORPHAN HYDROBROMIDE\DOXYLAMINE SUCCINATE\PHENYLEPHRINE
     Indication: OROPHARYNGEAL PAIN
     Dosage: 2 SOFTGELS, SINGLE
     Route: 048
     Dates: start: 20151002, end: 20151002

REACTIONS (5)
  - Back pain [Recovered/Resolved]
  - Vomiting [Recovered/Resolved]
  - Malaise [Recovered/Resolved]
  - Decreased appetite [Recovered/Resolved]
  - Dehydration [Recovered/Resolved]

NARRATIVE: CASE EVENT DATE: 20151002
